FAERS Safety Report 12654679 (Version 2)
Quarter: 2016Q3

REPORT INFORMATION
  Report Type: Spontaneous
  Country: KR (occurrence: KR)
  Receive Date: 20160816
  Receipt Date: 20160816
  Transmission Date: 20161109
  Serious: Yes (Hospitalization)
  Sender: FDA-Public Use
  Company Number: KR-JNJFOC-20160806531

PATIENT
  Age: 38 Year

DRUGS (1)
  1. STELARA [Suspect]
     Active Substance: USTEKINUMAB
     Indication: PSORIASIS
     Route: 058
     Dates: start: 201511

REACTIONS (2)
  - Pneumonia [Recovering/Resolving]
  - Lung abscess [Recovering/Resolving]

NARRATIVE: CASE EVENT DATE: 2016
